FAERS Safety Report 6611861-X (Version None)
Quarter: 2010Q1

REPORT INFORMATION
  Report Type: 
  Country: None (occurrence: None)
  Receive Date: 20100303
  Receipt Date: 20100222
  Transmission Date: 20100710
  Serious: Yes (Death, Life-Threatening)
  Sender: FDA-Public Use
  Company Number: GB-AMGEN-US133415

PATIENT
  Age: 55 Year
  Sex: Female
  Weight: 67 kg

DRUGS (6)
  1. ENBREL [Suspect]
     Indication: RHEUMATOID ARTHRITIS
     Route: 058
     Dates: end: 20050401
  2. METHOTREXATE [Suspect]
     Indication: RHEUMATOID ARTHRITIS
     Dosage: 25MG FREQUENCY UNKNOWN
     Route: 048
     Dates: end: 20050401
  3. DIHYDROCODEINE BITARTRATE INJ [Concomitant]
     Indication: ANALGESIC THERAPY
     Route: 048
  4. SENNA [Concomitant]
     Dosage: 2 TABLETS
     Route: 048
  5. PREDNISOLONE [Concomitant]
     Indication: BRONCHIAL CARCINOMA
     Dosage: 15MG FREQUENCY UNKNOWN
     Route: 048
     Dates: end: 20050401
  6. CYCLIZINE [Concomitant]
     Route: 048

REACTIONS (2)
  - METASTASIS [None]
  - SMALL CELL LUNG CANCER EXTENSIVE STAGE [None]
